FAERS Safety Report 21315938 (Version 1)
Quarter: 2022Q3

REPORT INFORMATION
  Report Type: Spontaneous
  Country: US (occurrence: US)
  Receive Date: 20220910
  Receipt Date: 20220910
  Transmission Date: 20221026
  Serious: No
  Sender: FDA-Public Use
  Company Number: US-drreddys-SPO/USA/22/0153976

PATIENT
  Age: 67 Year

DRUGS (3)
  1. ACCUTANE [Suspect]
     Active Substance: ISOTRETINOIN
     Indication: Acne
     Dosage: RMA ISSUE DATE: 25 JULY 2022 05:43:12 PM,
  2. ACCUTANE [Suspect]
     Active Substance: ISOTRETINOIN
     Dosage: RMA ISSUE DATE: 25 JULY 2022 05:43:12 PM
  3. ACCUTANE [Suspect]
     Active Substance: ISOTRETINOIN
     Dosage: RMA ISSUE DATE: 27 JUNE 2022 12:12:16 PM

REACTIONS (3)
  - Patient dissatisfaction with treatment [Unknown]
  - Drug ineffective [Unknown]
  - Product quality issue [Unknown]
